FAERS Safety Report 6313562-4 (Version None)
Quarter: 2009Q3

REPORT INFORMATION
  Report Type: 
  Country: None (occurrence: None)
  Receive Date: 20090818
  Receipt Date: 20090810
  Transmission Date: 20100115
  Serious: Yes (Life-Threatening, Hospitalization, Disabling, Other)
  Sender: FDA-Public Use
  Company Number: US-AVENTIS-200814733US

PATIENT
  Sex: Female
  Weight: 63.5 kg

DRUGS (11)
  1. KETEK [Suspect]
     Route: 048
     Dates: start: 20060719, end: 20060721
  2. RENAGEL                            /01459902/ [Concomitant]
     Dates: start: 20061113
  3. VENLAFAXINE HYDROCHLORIDE [Concomitant]
     Indication: DEPRESSION
     Dates: start: 20060701
  4. SOMA [Concomitant]
     Dates: start: 20070601
  5. XANAX [Concomitant]
     Indication: ANXIETY
     Dates: start: 20070628
  6. FLUCONAZOLE [Concomitant]
     Dosage: DOSE: UNK
  7. DIFLUCAN [Concomitant]
     Dosage: DOSE: UNK
  8. ZYVOX [Concomitant]
     Dosage: DOSE: UNK
  9. ZOSYN [Concomitant]
     Dosage: DOSE: UNK
  10. DARVOCET-N 100 [Concomitant]
     Dosage: DOSE: UNK
  11. DOPAMINE HCL [Concomitant]
     Dosage: DOSE: UNK

REACTIONS (20)
  - ABDOMINAL PAIN [None]
  - ANURIA [None]
  - BILE DUCT OBSTRUCTION [None]
  - BLOOD CREATININE INCREASED [None]
  - BLOOD LACTATE DEHYDROGENASE INCREASED [None]
  - BLOOD UREA INCREASED [None]
  - BONE MARROW FAILURE [None]
  - DIARRHOEA [None]
  - DYSPNOEA [None]
  - LEUKOCYTOSIS [None]
  - LIVER FUNCTION TEST ABNORMAL [None]
  - LYMPHOCYTE MORPHOLOGY ABNORMAL [None]
  - MONOCYTE COUNT ABNORMAL [None]
  - MYELODYSPLASTIC SYNDROME [None]
  - NAUSEA [None]
  - NEPHROLITHIASIS [None]
  - OEDEMA PERIPHERAL [None]
  - RENAL FAILURE ACUTE [None]
  - THROMBOCYTOPENIA [None]
  - VOMITING [None]
